FAERS Safety Report 9382280 (Version 1)
Quarter: 2013Q3

REPORT INFORMATION
  Report Type: Spontaneous
  Country: US (occurrence: None)
  Receive Date: 20130702
  Receipt Date: 20130702
  Transmission Date: 20140515
  Serious: Yes (Other)
  Sender: FDA-Public Use
  Company Number: None

PATIENT
  Sex: Female
  Weight: 136.8 kg

DRUGS (1)
  1. TOPIRAMATE 100MG ZYDUS [Suspect]
     Dosage: 200 MG BID PO
     Route: 048
     Dates: start: 2009

REACTIONS (1)
  - Convulsion [None]
